FAERS Safety Report 11596345 (Version 1)
Quarter: 2015Q4

REPORT INFORMATION
  Report Type: Spontaneous
  Country: RO (occurrence: RO)
  Receive Date: 20151006
  Receipt Date: 20151006
  Transmission Date: 20160304
  Serious: Yes (Other)
  Sender: FDA-Public Use
  Company Number: RO-FRESENIUS KABI-FK201504739

PATIENT
  Age: 51 Year
  Sex: Female

DRUGS (2)
  1. CISPLATIN (MANUFACTURER UNKNOWN) [Suspect]
     Active Substance: CISPLATIN
     Indication: THYROID CANCER
     Route: 065
  2. ETOPOSIDE (MANUFACTURER UNKNOWN) [Suspect]
     Active Substance: ETOPOSIDE
     Indication: THYROID CANCER
     Route: 065

REACTIONS (5)
  - Oesophagitis [Unknown]
  - Anaemia [Unknown]
  - Dermatitis [Unknown]
  - Neutropenia [Unknown]
  - Weight decreased [Unknown]
